FAERS Safety Report 14342265 (Version 5)
Quarter: 2019Q1

REPORT INFORMATION
  Report Type: Spontaneous
  Country: FR (occurrence: FR)
  Receive Date: 20180102
  Receipt Date: 20190207
  Transmission Date: 20190417
  Serious: Yes (Death)
  Sender: FDA-Public Use
  Company Number: FR-MYLANLABS-2017M1083316

PATIENT
  Sex: Male

DRUGS (11)
  1. FOLINIC ACID [Suspect]
     Active Substance: LEUCOVORIN
     Indication: OSTEOSARCOMA
     Dosage: 15 MG, UNK (20H AFTER 15MG MTX INFUSION UP TO AT LEAST 11 DOSES EVERY 6H, OR MTX LEVEL {0.15 MM/L)
     Route: 048
  2. CYCLOPHOSPHAMIDE. [Suspect]
     Active Substance: CYCLOPHOSPHAMIDE
     Indication: OSTEOSARCOMA
     Dosage: UNK
     Route: 065
  3. MESNA. [Suspect]
     Active Substance: MESNA
     Indication: OSTEOSARCOMA
     Dosage: 3600 MG/M2, QD (CONTINUOUS INFUSION FOR 4 DAYS)
     Route: 041
  4. ZOLEDRONIC ACID [Suspect]
     Active Substance: ZOLEDRONIC ACID
     Indication: OSTEOSARCOMA
     Dosage: 10 DF, MONTHLY (10 MONTHLY INTRAVENOUS INFUSIONS DURING THE PRE AND POSTOPERATIVE TREATMENT PHASES)
     Route: 042
  5. CISPLATIN. [Suspect]
     Active Substance: CISPLATIN
     Indication: OSTEOSARCOMA
     Dosage: 12 G/M2 QD (120 MG/M2,CYCLIC 6 M-AP POST-OPERATIVELY, OVER 4 H IN 250 ML SALINE SERUM ONCE ON D)
     Route: 042
  6. IFOSFAMIDE. [Suspect]
     Active Substance: IFOSFAMIDE
     Indication: OSTEOSARCOMA
     Dosage: OVER 3 H IN 250-500 ML IN SALINE SERUM FOR 4 DAYS
     Route: 042
  7. FOLINIC ACID [Suspect]
     Active Substance: LEUCOVORIN
     Indication: OSTEOSARCOMA
     Dosage: 15 MILLIGRAM (20H AFTER 15MG MTX INFUSION UP TO AT LEAST 11 DOSES EVERY 6H, OR MTX LEVEL {0.15 MM/L)
     Route: 042
  8. DOXORUBICIN [Suspect]
     Active Substance: DOXORUBICIN
     Indication: OSTEOSARCOMA
     Dosage: 37.5 MG/M2, QD (OVER 6 H IN 250 ML 5 PERCENTAGE GLUCOSE WAS GIVEN DAILY THE FIRST TWO DAYS)
     Route: 042
  9. METHOTREXATE. [Suspect]
     Active Substance: METHOTREXATE
     Indication: OSTEOSARCOMA
     Dosage: 1200 MG/M2, QD (12 G/M2 CYCLIC 6 M-AP POST-OPERATIVELY)
     Route: 041
  10. CARBOPLATIN. [Suspect]
     Active Substance: CARBOPLATIN
     Indication: OSTEOSARCOMA
     Dosage: UNK
     Route: 065
  11. ETOPOSIDE. [Suspect]
     Active Substance: ETOPOSIDE
     Indication: OSTEOSARCOMA
     Dosage: 75 MG/M2, QD (6 M + 2 EI PRE-OPERATIVELY, OVER 1 H IN 250-500 ML SALINE SERUM FOR 4 DAYS)
     Route: 042

REACTIONS (1)
  - Toxicity to various agents [Fatal]
